FAERS Safety Report 15491447 (Version 1)
Quarter: 2018Q4

REPORT INFORMATION
  Report Type: Spontaneous
  Country: US (occurrence: US)
  Receive Date: 20181012
  Receipt Date: 20181012
  Transmission Date: 20190205
  Serious: No
  Sender: FDA-Public Use
  Company Number: US-LUPIN PHARMACEUTICALS INC.-2018-04528

PATIENT
  Age: 10 Year
  Sex: Male

DRUGS (1)
  1. CEPHALEXIN FOR ORAL SUSPENSION USP 125 MG/5 ML [Suspect]
     Active Substance: CEPHALEXIN
     Indication: PROPHYLAXIS
     Dosage: 125 MG/5 ML
     Route: 048

REACTIONS (1)
  - Blood glucose increased [Not Recovered/Not Resolved]

NARRATIVE: CASE EVENT DATE: 20180612
